FAERS Safety Report 14114155 (Version 4)
Quarter: 2018Q1

REPORT INFORMATION
  Report Type: Report from Study
  Country: None (occurrence: US)
  Receive Date: 20171023
  Receipt Date: 20180216
  Transmission Date: 20180508
  Serious: Yes (Hospitalization, Other)
  Sender: FDA-Public Use
  Company Number: US-ABBVIE-17K-163-2006707-00

PATIENT
  Sex: Female

DRUGS (3)
  1. PREDNISONE. [Concomitant]
     Active Substance: PREDNISONE
     Indication: PRODUCT USED FOR UNKNOWN INDICATION
  2. HUMIRA [Suspect]
     Active Substance: ADALIMUMAB
     Route: 058
     Dates: start: 2017, end: 201712
  3. HUMIRA [Suspect]
     Active Substance: ADALIMUMAB
     Indication: RHEUMATOID ARTHRITIS
     Route: 058
     Dates: start: 2013, end: 2017

REACTIONS (11)
  - Muscular weakness [Unknown]
  - Rheumatoid arthritis [Not Recovered/Not Resolved]
  - Pneumonia aspiration [Unknown]
  - Pneumonia [Recovered/Resolved]
  - Staphylococcal infection [Unknown]
  - Urinary tract infection [Unknown]
  - Injection site pruritus [Unknown]
  - Pneumonia [Recovering/Resolving]
  - Mastication disorder [Unknown]
  - Emphysema [Not Recovered/Not Resolved]
  - Chronic obstructive pulmonary disease [Unknown]

NARRATIVE: CASE EVENT DATE: 2017
